FAERS Safety Report 9623527 (Version 2)
Quarter: 2013Q4

REPORT INFORMATION
  Report Type: Spontaneous
  Country: US (occurrence: US)
  Receive Date: 20131015
  Receipt Date: 20131015
  Transmission Date: 20140711
  Serious: Yes (Other)
  Sender: FDA-Public Use
  Company Number: US-CELGENEUS-163-20785-13091477

PATIENT
  Sex: Female

DRUGS (1)
  1. THALOMID [Suspect]
     Indication: SARCOIDOSIS
     Dosage: 50 MILLIGRAM
     Route: 048
     Dates: start: 201307

REACTIONS (3)
  - Abasia [Unknown]
  - Pain in extremity [Unknown]
  - Neuropathy peripheral [Unknown]
